FAERS Safety Report 7668007-9 (Version None)
Quarter: 2011Q3

REPORT INFORMATION
  Report Type: 
  Country: None (occurrence: None)
  Receive Date: 20110808
  Receipt Date: 20110806
  Transmission Date: 20111222
  Serious: No
  Sender: FDA-Public Use
  Company Number: US-PFIZER INC-2011180221

PATIENT
  Sex: Female
  Weight: 54.4 kg

DRUGS (1)
  1. ADVIL LIQUI-GELS [Suspect]
     Indication: NASAL CONGESTION
     Dosage: UNK
     Route: 048
     Dates: start: 20110805

REACTIONS (3)
  - EYE SWELLING [None]
  - LIP SWELLING [None]
  - SKIN DISORDER [None]
